FAERS Safety Report 4967370-7 (Version None)
Quarter: 2006Q2

REPORT INFORMATION
  Report Type: 
  Country: None (occurrence: None)
  Receive Date: 20060404
  Receipt Date: 20060327
  Transmission Date: 20061013
  Serious: Yes (Life-Threatening, Hospitalization)
  Sender: FDA-Public Use
  Company Number: 2006-140302-NL

PATIENT
  Age: 49 Year
  Sex: Male

DRUGS (3)
  1. MIRTAZAPINE [Suspect]
     Indication: DEPRESSION
     Dosage: 30 MG
     Route: 048
     Dates: start: 20050101, end: 20060101
  2. CLOMIPRAMINE HCL [Concomitant]
  3. ZOPICLONE [Concomitant]

REACTIONS (3)
  - AGITATION [None]
  - DRUG DEPENDENCE [None]
  - SUICIDE ATTEMPT [None]
